FAERS Safety Report 16925880 (Version 1)
Quarter: 2019Q4

REPORT INFORMATION
  Report Type: Spontaneous
  Country: IN (occurrence: IN)
  Receive Date: 20191016
  Receipt Date: 20191016
  Transmission Date: 20200122
  Serious: Yes (Other)
  Sender: FDA-Public Use
  Company Number: IN-AKORN PHARMACEUTICALS-2019AKN02156

PATIENT
  Age: 41 Year
  Sex: Male

DRUGS (1)
  1. FLUOCINOLONE ACETONIDE. [Suspect]
     Active Substance: FLUOCINOLONE ACETONIDE
     Indication: AUTOIMMUNE UVEITIS
     Dosage: UNK

REACTIONS (2)
  - Device dislocation [Recovered/Resolved]
  - Visual impairment [Recovered/Resolved]
